FAERS Safety Report 11471187 (Version 2)
Quarter: 2015Q3

REPORT INFORMATION
  Report Type: Spontaneous
  Country: US (occurrence: US)
  Receive Date: 20150903
  Receipt Date: 20150903
  Transmission Date: 20151125
  Serious: No
  Sender: FDA-Public Use
  Company Number: US-ELI_LILLY_AND_COMPANY-US201201007819

PATIENT
  Age: 39 Year
  Sex: Male

DRUGS (1)
  1. CYMBALTA [Suspect]
     Active Substance: DULOXETINE HYDROCHLORIDE
     Indication: DEPRESSION
     Dosage: 60 MG, QD

REACTIONS (5)
  - Chest discomfort [Unknown]
  - Panic reaction [Unknown]
  - Crying [Unknown]
  - Drug dose omission [Recovered/Resolved]
  - Feeling abnormal [Unknown]
